FAERS Safety Report 15637713 (Version 1)
Quarter: 2018Q4

REPORT INFORMATION
  Report Type: Spontaneous
  Country: US (occurrence: US)
  Receive Date: 20181120
  Receipt Date: 20181120
  Transmission Date: 20190205
  Serious: No
  Sender: FDA-Public Use
  Company Number: US-JNJFOC-20180532260

PATIENT
  Age: 74 Year
  Sex: Female
  Weight: 51 kg

DRUGS (11)
  1. PREGNENOLONE [Concomitant]
     Active Substance: PREGNENOLONE
  2. FOLIC ACID. [Concomitant]
     Active Substance: FOLIC ACID
  3. ZINC. [Concomitant]
     Active Substance: ZINC
  4. SACCHAROMYCES CEREVISIAE. [Concomitant]
     Active Substance: SACCHAROMYCES CEREVISIAE
  5. LATANOPROST. [Concomitant]
     Active Substance: LATANOPROST
  6. VITAMIN B6 [Concomitant]
     Active Substance: PYRIDOXINE HYDROCHLORIDE
  7. IRON [Concomitant]
     Active Substance: IRON
  8. ARMOUR THYROID [Concomitant]
     Active Substance: THYROID, PORCINE
  9. IMBRUVICA [Suspect]
     Active Substance: IBRUTINIB
     Indication: WALDENSTROM^S MACROGLOBULINAEMIA
     Route: 048
     Dates: start: 201804
  10. IMBRUVICA [Concomitant]
     Active Substance: IBRUTINIB
     Indication: WALDENSTROM^S MACROGLOBULINAEMIA
     Dates: end: 201804
  11. VITAMIN D3 [Concomitant]
     Active Substance: CHOLECALCIFEROL

REACTIONS (2)
  - Ulcer [Unknown]
  - Product use complaint [Unknown]

NARRATIVE: CASE EVENT DATE: 201804
